FAERS Safety Report 8691271 (Version 3)
Quarter: 2013Q1

REPORT INFORMATION
  Report Type: Spontaneous
  Country: BR (occurrence: BR)
  Receive Date: 20120730
  Receipt Date: 20130306
  Transmission Date: 20140127
  Serious: Yes (Hospitalization)
  Sender: FDA-Public Use
  Company Number: BR-BRISTOL-MYERS SQUIBB COMPANY-16796344

PATIENT
  Age: 69 Year
  Sex: Male
  Weight: 80 kg

DRUGS (2)
  1. SPRYCEL (CML) TABS 50 MG [Suspect]
     Indication: CHRONIC MYELOID LEUKAEMIA
     Dosage: STARTED 3 YRS AGO?1DF:2 TABS OF 50 MG ?RED TO 1 TAB DAILY, ALSO TAKEN ON 17JUL12
     Route: 048
     Dates: end: 20121003
  2. CEPHALEXIN [Suspect]

REACTIONS (7)
  - Hypersensitivity [Unknown]
  - Localised infection [Unknown]
  - Platelet count decreased [Unknown]
  - Red blood cell count decreased [Unknown]
  - White blood cell count decreased [Unknown]
  - Anaemia [Unknown]
  - Pain in extremity [Unknown]
